FAERS Safety Report 5210818-3 (Version None)
Quarter: 2006Q4

REPORT INFORMATION
  Report Type: 
  Country: None (occurrence: None)
  Receive Date: 20061101
  Receipt Date: 20060725
  Transmission Date: 20070319
  Serious: No
  Sender: FDA-Public Use
  Company Number: 2006PV018259

PATIENT
  Age: 65 Year
  Sex: Male
  Weight: 94.3482 kg

DRUGS (4)
  1. SYMLIN [Suspect]
     Indication: DIABETES MELLITUS NON-INSULIN-DEPENDENT
     Dosage: 120 MCG;QAM;SC
     Route: 058
     Dates: start: 20060601
  2. 70/30 [Concomitant]
  3. HUMULIN 70/30 [Concomitant]
  4. AVANDIA [Concomitant]

REACTIONS (3)
  - CYSTITIS [None]
  - DECREASED APPETITE [None]
  - DRUG INEFFECTIVE [None]
